FAERS Safety Report 5959625-4 (Version None)
Quarter: 2008Q4

REPORT INFORMATION
  Report Type: 
  Country: None (occurrence: None)
  Receive Date: 20081106
  Receipt Date: 20080213
  Transmission Date: 20090506
  Serious: Yes (Other)
  Sender: FDA-Public Use
  Company Number: US200802002814

PATIENT
  Sex: Female

DRUGS (1)
  1. PROZAC [Suspect]
     Dosage: 30 MG, DAILY (1/D)

REACTIONS (1)
  - LIVER FUNCTION TEST ABNORMAL [None]
